FAERS Safety Report 7329018-6 (Version None)
Quarter: 2011Q1

REPORT INFORMATION
  Report Type: 
  Country: None (occurrence: None)
  Receive Date: 20110303
  Receipt Date: 20110223
  Transmission Date: 20110831
  Serious: Yes (Other)
  Sender: FDA-Public Use
  Company Number: JP-BRISTOL-MYERS SQUIBB COMPANY-15576119

PATIENT
  Age: 5 Decade
  Sex: Male

DRUGS (3)
  1. JANUVIA [Concomitant]
     Route: 048
  2. BARACLUDE [Suspect]
     Indication: HEPATIC CIRRHOSIS
     Route: 048
     Dates: start: 20110209
  3. ACTOS [Concomitant]
     Route: 048

REACTIONS (2)
  - HEPATIC CIRRHOSIS [None]
  - ASCITES [None]
